FAERS Safety Report 21518204 (Version 1)
Quarter: 2022Q4

REPORT INFORMATION
  Report Type: Report from Study
  Country: CA (occurrence: CA)
  Receive Date: 20221028
  Receipt Date: 20221028
  Transmission Date: 20230113
  Serious: Yes (Other)
  Sender: FDA-Public Use
  Company Number: CA-ABBVIE-4175918

PATIENT
  Sex: Male

DRUGS (1)
  1. HUMIRA [Suspect]
     Active Substance: ADALIMUMAB
     Indication: Crohn^s disease
     Route: 058
     Dates: start: 20140110

REACTIONS (6)
  - Stoma complication [Unknown]
  - Medical device site pain [Unknown]
  - Arthralgia [Unknown]
  - Osteoporosis [Unknown]
  - Stomal hernia [Unknown]
  - Stoma site hypergranulation [Unknown]
